FAERS Safety Report 16311335 (Version 3)
Quarter: 2021Q1

REPORT INFORMATION
  Report Type: Spontaneous
  Country: US (occurrence: US)
  Receive Date: 20190514
  Receipt Date: 20210212
  Transmission Date: 20210419
  Serious: Yes (Hospitalization, Other)
  Sender: FDA-Public Use
  Company Number: US-ASTRAZENECA-2019SE67116

PATIENT
  Sex: Female
  Weight: 53.5 kg

DRUGS (75)
  1. PRILOSEC [Suspect]
     Active Substance: OMEPRAZOLE MAGNESIUM
     Indication: GASTROOESOPHAGEAL REFLUX DISEASE
     Dosage: GENERIC
     Route: 065
     Dates: start: 20131108, end: 20170327
  2. PRILOSEC OTC [Suspect]
     Active Substance: OMEPRAZOLE MAGNESIUM
     Indication: GASTROOESOPHAGEAL REFLUX DISEASE
     Route: 048
     Dates: start: 20060923, end: 20090416
  3. SEROQUEL [Concomitant]
     Active Substance: QUETIAPINE FUMARATE
  4. CLONAZEPAM. [Concomitant]
     Active Substance: CLONAZEPAM
  5. LAMICTAL [Concomitant]
     Active Substance: LAMOTRIGINE
  6. CRESTOR [Concomitant]
     Active Substance: ROSUVASTATIN CALCIUM
  7. INSULIN [Concomitant]
     Active Substance: INSULIN NOS
  8. DEXTROSE. [Concomitant]
     Active Substance: DEXTROSE
  9. PROTONIX [Suspect]
     Active Substance: PANTOPRAZOLE SODIUM
     Route: 065
     Dates: start: 200609, end: 200904
  10. PROTONIX [Suspect]
     Active Substance: PANTOPRAZOLE SODIUM
     Indication: GASTROOESOPHAGEAL REFLUX DISEASE
     Route: 065
     Dates: start: 20201221, end: 20201222
  11. TORSEMIDE. [Concomitant]
     Active Substance: TORSEMIDE
     Indication: HYPERTENSION
     Dates: start: 20121103, end: 20130705
  12. VITAMIN B [Concomitant]
     Active Substance: VITAMIN B
     Dates: start: 2009, end: 2010
  13. CRANBERRY. [Concomitant]
     Active Substance: CRANBERRY
     Dates: start: 2009, end: 2010
  14. CALCIUM CARBONATE. [Concomitant]
     Active Substance: CALCIUM CARBONATE
  15. AZITHROMYCIN ANHYDROUS. [Concomitant]
     Active Substance: AZITHROMYCIN ANHYDROUS
  16. DIPHENHYDRAMINE. [Concomitant]
     Active Substance: DIPHENHYDRAMINE
  17. DOCUSATE SOD [Concomitant]
  18. NICOTINE. [Concomitant]
     Active Substance: NICOTINE
  19. PAXIL [Concomitant]
     Active Substance: PAROXETINE HYDROCHLORIDE
  20. PRILOSEC [Suspect]
     Active Substance: OMEPRAZOLE MAGNESIUM
     Indication: GASTROOESOPHAGEAL REFLUX DISEASE
     Route: 048
     Dates: start: 200609, end: 200904
  21. PRILOSEC [Suspect]
     Active Substance: OMEPRAZOLE MAGNESIUM
     Indication: GASTROOESOPHAGEAL REFLUX DISEASE
     Route: 048
     Dates: start: 2000
  22. SERTRALINE [Concomitant]
     Active Substance: SERTRALINE HYDROCHLORIDE
     Indication: AFFECTIVE DISORDER
     Dates: start: 20130107, end: 20130404
  23. SERTRALINE [Concomitant]
     Active Substance: SERTRALINE HYDROCHLORIDE
     Indication: AFFECTIVE DISORDER
     Dates: start: 20160804, end: 20161221
  24. SERTRALINE [Concomitant]
     Active Substance: SERTRALINE HYDROCHLORIDE
     Indication: AFFECTIVE DISORDER
     Dates: start: 20170109, end: 20170324
  25. GARLIC. [Concomitant]
     Active Substance: GARLIC
     Dates: start: 2009, end: 2010
  26. FLAXSEED [Concomitant]
     Active Substance: FLAX SEED
     Dates: start: 2009, end: 2010
  27. SENNA [Concomitant]
     Active Substance: SENNA LEAF\SENNOSIDES\SENNOSIDES A AND B
  28. PATANOL [Concomitant]
     Active Substance: OLOPATADINE HYDROCHLORIDE
  29. GLIPIZIDE. [Concomitant]
     Active Substance: GLIPIZIDE
  30. OXYCODONE [Concomitant]
     Active Substance: OXYCODONE
  31. ULORIC [Concomitant]
     Active Substance: FEBUXOSTAT
  32. IPRATROPIUM [Concomitant]
     Active Substance: IPRATROPIUM
  33. ZOFRAN [Concomitant]
     Active Substance: ONDANSETRON HYDROCHLORIDE
  34. SERTRALINE [Concomitant]
     Active Substance: SERTRALINE HYDROCHLORIDE
     Indication: AFFECTIVE DISORDER
     Dates: start: 20120929, end: 20121205
  35. PROMETHAZINE [Concomitant]
     Active Substance: PROMETHAZINE HYDROCHLORIDE
     Indication: VIRAL INFECTION
     Dates: start: 20160322, end: 20160929
  36. LIPITOR [Concomitant]
     Active Substance: ATORVASTATIN CALCIUM
     Indication: BLOOD CHOLESTEROL ABNORMAL
     Dates: start: 20061219, end: 20080611
  37. DOCUSATE [Concomitant]
     Active Substance: DOCUSATE
     Indication: CONSTIPATION
     Dates: start: 20060923, end: 20090612
  38. FOSAMAX [Concomitant]
     Active Substance: ALENDRONATE SODIUM
  39. STRATTERA [Concomitant]
     Active Substance: ATOMOXETINE HYDROCHLORIDE
  40. LOTEMAX [Concomitant]
     Active Substance: LOTEPREDNOL ETABONATE
  41. LISINOPRIL. [Concomitant]
     Active Substance: LISINOPRIL
  42. ATENOLOL. [Concomitant]
     Active Substance: ATENOLOL
  43. PAROXETINE. [Concomitant]
     Active Substance: PAROXETINE
  44. MINOCYCLINE HCL [Concomitant]
     Active Substance: MINOCYCLINE HYDROCHLORIDE
  45. MILK OF MAGNESIA [Concomitant]
     Active Substance: MAGNESIUM HYDROXIDE
  46. KETOROLAC [Concomitant]
     Active Substance: KETOROLAC TROMETHAMINE
  47. IRON [Concomitant]
     Active Substance: IRON
  48. NEXIUM [Suspect]
     Active Substance: ESOMEPRAZOLE MAGNESIUM
     Route: 048
     Dates: start: 200609, end: 200904
  49. PROMETHAZINE [Concomitant]
     Active Substance: PROMETHAZINE HYDROCHLORIDE
     Indication: VIRAL INFECTION
     Dates: start: 20111123, end: 20140901
  50. NASACORT [Concomitant]
     Active Substance: TRIAMCINOLONE ACETONIDE
  51. ACTONEL [Concomitant]
     Active Substance: RISEDRONATE SODIUM
  52. OXCARBAZEPINE. [Concomitant]
     Active Substance: OXCARBAZEPINE
  53. CEPHALEXIN. [Concomitant]
     Active Substance: CEPHALEXIN
  54. METHADONE [Concomitant]
     Active Substance: METHADONE HYDROCHLORIDE
     Indication: PAIN
     Dates: start: 20121015, end: 20140411
  55. RANITIDINE. [Concomitant]
     Active Substance: RANITIDINE
     Dates: start: 20121211, end: 20131013
  56. ALPRAZOLAM. [Concomitant]
     Active Substance: ALPRAZOLAM
  57. LOVASTATIN. [Concomitant]
     Active Substance: LOVASTATIN
  58. CAPSAICIN. [Concomitant]
     Active Substance: CAPSAICIN
  59. PRILOSEC OTC [Suspect]
     Active Substance: OMEPRAZOLE MAGNESIUM
     Indication: GASTROOESOPHAGEAL REFLUX DISEASE
     Route: 048
     Dates: start: 200609, end: 200904
  60. RANITIDINE. [Concomitant]
     Active Substance: RANITIDINE
     Dates: start: 20090612, end: 20100510
  61. DOXYCYCLINE HYCLATE. [Concomitant]
     Active Substance: DOXYCYCLINE HYCLATE
  62. BENICAR [Concomitant]
     Active Substance: OLMESARTAN MEDOXOMIL
  63. LOVAZA [Concomitant]
     Active Substance: OMEGA-3-ACID ETHYL ESTERS
  64. IBANDRONATE [Concomitant]
     Active Substance: IBANDRONATE SODIUM
  65. DIGOXIN. [Concomitant]
     Active Substance: DIGOXIN
  66. SERTRALINE [Concomitant]
     Active Substance: SERTRALINE HYDROCHLORIDE
     Indication: AFFECTIVE DISORDER
     Dates: start: 20130501, end: 20130820
  67. SERTRALINE [Concomitant]
     Active Substance: SERTRALINE HYDROCHLORIDE
     Indication: AFFECTIVE DISORDER
     Dates: start: 20160412, end: 20160704
  68. MILK THISTLE [Concomitant]
     Active Substance: DIETARY SUPPLEMENT\HERBALS\MILK THISTLE
     Dates: start: 2009, end: 2010
  69. POTASSIUM CHLORIDE. [Concomitant]
     Active Substance: POTASSIUM CHLORIDE
  70. METHOCARBAMOL. [Concomitant]
     Active Substance: METHOCARBAMOL
  71. ABILIFY [Concomitant]
     Active Substance: ARIPIPRAZOLE
  72. HYDROCODONE BITARTRATE AND ACETAMINOPHEN [Concomitant]
     Active Substance: ACETAMINOPHEN\HYDROCODONE BITARTRATE
  73. FISH OIL [Concomitant]
     Active Substance: FISH OIL
  74. NALOXONE [Concomitant]
     Active Substance: NALOXONE
  75. DILAUDID [Concomitant]
     Active Substance: HYDROMORPHONE HYDROCHLORIDE

REACTIONS (4)
  - Acute kidney injury [Unknown]
  - Renal failure [Unknown]
  - Chronic kidney disease [Not Recovered/Not Resolved]
  - Gastrooesophageal reflux disease [Not Recovered/Not Resolved]
